FAERS Safety Report 20565622 (Version 2)
Quarter: 2022Q3

REPORT INFORMATION
  Report Type: Spontaneous
  Country: BR (occurrence: BR)
  Receive Date: 20220308
  Receipt Date: 20220704
  Transmission Date: 20221026
  Serious: Yes (Other)
  Sender: FDA-Public Use
  Company Number: BR-GLAXOSMITHKLINE-BR2022AMR040940

PATIENT

DRUGS (4)
  1. NARATRIPTAN HYDROCHLORIDE [Suspect]
     Active Substance: NARATRIPTAN HYDROCHLORIDE
     Indication: Migraine
     Dosage: 2.5 MG, BID
  2. DIPYRONE [Suspect]
     Active Substance: DIPYRONE
     Indication: Analgesic therapy
     Dosage: UNK
  3. ACETAMINOPHEN [Suspect]
     Active Substance: ACETAMINOPHEN
     Indication: Analgesic therapy
     Dosage: UNK
  4. DIPYRONE [Suspect]
     Active Substance: DIPYRONE
     Indication: Analgesic therapy
     Dosage: UNK

REACTIONS (7)
  - Drug dependence [Unknown]
  - Confusional state [Unknown]
  - Headache [Unknown]
  - Dizziness [Unknown]
  - Adverse drug reaction [Unknown]
  - Therapeutic product effect incomplete [Unknown]
  - Product use in unapproved indication [Unknown]
